FAERS Safety Report 8510188-9 (Version None)
Quarter: 2012Q3

REPORT INFORMATION
  Report Type: 
  Country: None (occurrence: None)
  Receive Date: 20120713
  Receipt Date: 20120703
  Transmission Date: 20120928
  Serious: No
  Sender: FDA-Public Use
  Company Number: US-ASTRAZENECA-2012SE45909

PATIENT
  Sex: Female

DRUGS (1)
  1. ARIMIDEX [Suspect]
     Indication: ENDOMETRIOSIS
     Route: 048

REACTIONS (8)
  - DIARRHOEA [None]
  - DEHYDRATION [None]
  - TEMPERATURE INTOLERANCE [None]
  - HEADACHE [None]
  - PAIN [None]
  - NAUSEA [None]
  - HOT FLUSH [None]
  - ANHIDROSIS [None]
